FAERS Safety Report 6436251-4 (Version None)
Quarter: 2009Q4

REPORT INFORMATION
  Report Type: 
  Country: None (occurrence: None)
  Receive Date: 20091111
  Receipt Date: 20091110
  Transmission Date: 20100525
  Serious: Yes (Hospitalization)
  Sender: FDA-Public Use
  Company Number: A0780652A

PATIENT
  Age: 60 Year
  Sex: Male
  Weight: 125 kg

DRUGS (12)
  1. AVANDIA [Suspect]
     Indication: DIABETES MELLITUS
     Dosage: 8MG PER DAY
     Route: 048
     Dates: start: 20010501, end: 20070301
  2. PRANDIN [Concomitant]
  3. AMARYL [Concomitant]
  4. HYDROCHLOROTHIAZIDE [Concomitant]
  5. NEXIUM [Concomitant]
  6. IRON [Concomitant]
  7. PLAVIX [Concomitant]
  8. AUGMENTIN '125' [Concomitant]
  9. FENOFIBRATE [Concomitant]
  10. TRICOR [Concomitant]
  11. SINGULAIR [Concomitant]
  12. ALBUTEROL [Concomitant]

REACTIONS (8)
  - ACUTE CORONARY SYNDROME [None]
  - BLOOD CHOLESTEROL INCREASED [None]
  - BLOOD PRESSURE INCREASED [None]
  - CORONARY ARTERY DISEASE [None]
  - EMOTIONAL DISORDER [None]
  - HYPERLIPIDAEMIA [None]
  - MYOCARDIAL INFARCTION [None]
  - PAIN [None]
